FAERS Safety Report 24993584 (Version 1)
Quarter: 2025Q1

REPORT INFORMATION
  Report Type: Spontaneous
  Country: US (occurrence: US)
  Receive Date: 20250221
  Receipt Date: 20250221
  Transmission Date: 20250408
  Serious: No
  Sender: Haleon PLC
  Company Number: US-HALEON-2229394

PATIENT
  Age: 25 Year
  Sex: Female

DRUGS (2)
  1. THERAFLU SEVERE COLD RELIEF NIGHTTIME (ACETAMINOPHEN\DIPHENHYDRAMINE H [Suspect]
     Active Substance: ACETAMINOPHEN\DIPHENHYDRAMINE HYDROCHLORIDE
     Indication: Product used for unknown indication
     Dates: end: 20250219
  2. THERAFLU SEVERE COLD RELIEF DAYTIME HONEY LEMON FLAVOR [Suspect]
     Active Substance: ACETAMINOPHEN\DEXTROMETHORPHAN HYDROBROMIDE
     Indication: Product used for unknown indication
     Dates: end: 20250219

REACTIONS (1)
  - Drug ineffective [Unknown]
